FAERS Safety Report 8229310-7 (Version None)
Quarter: 2012Q1

REPORT INFORMATION
  Report Type: 
  Country: None (occurrence: None)
  Receive Date: 20120322
  Receipt Date: 20120313
  Transmission Date: 20120608
  Serious: Yes (Hospitalization)
  Sender: FDA-Public Use
  Company Number: FR-BRISTOL-MYERS SQUIBB COMPANY-16455784

PATIENT
  Age: 82 Year
  Sex: Female

DRUGS (7)
  1. PRAVASTATIN [Concomitant]
  2. GAVISCON [Concomitant]
  3. DIGOXIN [Concomitant]
  4. LASIX [Concomitant]
  5. COUMADIN [Suspect]
     Indication: VITAMIN K DEFICIENCY
     Route: 048
  6. RABEPRAZOLE SODIUM [Concomitant]
  7. NITROGLYCERIN [Concomitant]

REACTIONS (2)
  - MALAISE [None]
  - MELAENA [None]
